FAERS Safety Report 9845597 (Version 2)
Quarter: 2014Q1

REPORT INFORMATION
  Report Type: Spontaneous
  Country: US (occurrence: US)
  Receive Date: 20140127
  Receipt Date: 20140205
  Transmission Date: 20141002
  Serious: Yes (Hospitalization)
  Sender: FDA-Public Use
  Company Number: US-BAXTER-2014BAX002940

PATIENT
  Sex: Male

DRUGS (2)
  1. DIANEAL LOW CALCIUM [Suspect]
     Indication: RENAL FAILURE CHRONIC
     Route: 033
     Dates: start: 201310
  2. DIANEAL LOW CALCIUM [Suspect]
     Indication: RENAL FAILURE CHRONIC
     Route: 033

REACTIONS (6)
  - Weight increased [Recovering/Resolving]
  - Swelling [Recovering/Resolving]
  - Dysphagia [Recovering/Resolving]
  - Incorrect drug administration duration [Recovering/Resolving]
  - Blood albumin decreased [Recovering/Resolving]
  - Blood sodium increased [Recovering/Resolving]
